FAERS Safety Report 11218563 (Version 1)
Quarter: 2015Q2

REPORT INFORMATION
  Report Type: Spontaneous
  Country: US (occurrence: US)
  Receive Date: 20150625
  Receipt Date: 20150625
  Transmission Date: 20150821
  Serious: No
  Sender: FDA-Public Use
  Company Number: US-MYLANLABS-2015M1012588

PATIENT
  Sex: Female
  Weight: 81.63 kg

DRUGS (1)
  1. PERFOROMIST [Suspect]
     Active Substance: FORMOTEROL FUMARATE DIHYDRATE
     Dosage: 20 ?G, ONCE
     Route: 055

REACTIONS (2)
  - Throat irritation [Not Recovered/Not Resolved]
  - Expired product administered [Not Recovered/Not Resolved]
